FAERS Safety Report 8613110-X (Version None)
Quarter: 2012Q3

REPORT INFORMATION
  Report Type: 
  Country: None (occurrence: None)
  Receive Date: 20120822
  Receipt Date: 20120724
  Transmission Date: 20120928
  Serious: Yes (Hospitalization)
  Sender: FDA-Public Use
  Company Number: US-MSD-1207USA002017

PATIENT

DRUGS (6)
  1. TEMOZOLOMIDE [Suspect]
     Indication: GLIOBLASTOMA MULTIFORME
     Dosage: 75 MG/M2, QD
     Route: 048
     Dates: start: 20120604, end: 20120627
  2. TEMOZOLOMIDE [Suspect]
     Dosage: 300 MG, Q5W
     Dates: start: 20120604, end: 20120627
  3. BLINDED POST TRIAL THERAPY [Suspect]
     Indication: GLIOBLASTOMA MULTIFORME
     Dosage: 300 MG, Q5W
     Dates: start: 20120604, end: 20120627
  4. BLINDED PRE TRIAL THERAPY [Suspect]
     Indication: GLIOBLASTOMA MULTIFORME
     Dosage: 300 MG, Q5W
     Dates: start: 20120604, end: 20120627
  5. BLINDED VORINOSTAT [Suspect]
     Indication: GLIOBLASTOMA MULTIFORME
     Dosage: 300 MG, Q5W
     Dates: start: 20120604, end: 20120627
  6. TEMOZOLOMIDE [Suspect]
     Indication: GLIOBLASTOMA MULTIFORME
     Dosage: 300 MG, Q5W
     Dates: start: 20120604, end: 20120627

REACTIONS (5)
  - MUSCULAR WEAKNESS [None]
  - DEHYDRATION [None]
  - ATRIAL TACHYCARDIA [None]
  - HYPOTENSION [None]
  - BLOOD LACTIC ACID INCREASED [None]
